FAERS Safety Report 5420534-0 (Version None)
Quarter: 2007Q3

REPORT INFORMATION
  Report Type: 
  Country: None (occurrence: None)
  Receive Date: 20070821
  Receipt Date: 20070426
  Transmission Date: 20080115
  Serious: No
  Sender: FDA-Public Use
  Company Number: US-KINGPHARMUSA00001-K200700527

PATIENT

DRUGS (3)
  1. CYTOMEL [Suspect]
     Indication: AUTOIMMUNE THYROIDITIS
     Dosage: UNK, UNK
     Dates: start: 20040101
  2. CYTOMEL [Suspect]
     Indication: HYPOTHYROIDISM
     Dosage: 5 MCG, BID
     Route: 048
     Dates: start: 20070423, end: 20070425
  3. LEVOTHROID [Concomitant]
     Indication: HYPOTHYROIDISM
     Dosage: .05 MG, TID
     Route: 048
     Dates: start: 19820101

REACTIONS (9)
  - BACK PAIN [None]
  - CHEST DISCOMFORT [None]
  - DIARRHOEA [None]
  - DYSPNOEA [None]
  - FATIGUE [None]
  - HEADACHE [None]
  - MALAISE [None]
  - PAIN IN EXTREMITY [None]
  - PALPITATIONS [None]
